FAERS Safety Report 16894400 (Version 2)
Quarter: 2019Q4

REPORT INFORMATION
  Report Type: Spontaneous
  Country: US (occurrence: US)
  Receive Date: 20191008
  Receipt Date: 20191226
  Transmission Date: 20200122
  Serious: No
  Sender: FDA-Public Use
  Company Number: US-PFIZER INC-2016017890

PATIENT
  Age: 72 Year
  Sex: Female

DRUGS (5)
  1. IBRANCE [Suspect]
     Active Substance: PALBOCICLIB
     Dosage: 125 MG, CYCLIC (TAKE FOR 21 DAYS FOLLOWED BY A 7 DAY REST PERIOD/TAKE WITH FOOD)
     Route: 048
     Dates: start: 20160706
  2. IBRANCE [Suspect]
     Active Substance: PALBOCICLIB
     Dosage: 100 MG, CYCLIC (TAKE FOR 21 DAYS FOLLOWED BY A 7 DAY REST PERIOD/TAKE WITH FOOD)/(14 DAYS ON,14 OFF)
     Route: 048
     Dates: start: 20171018
  3. IBRANCE [Suspect]
     Active Substance: PALBOCICLIB
     Dosage: 100 MG, UNK
  4. FEMARA [Concomitant]
     Active Substance: LETROZOLE
     Dosage: UNK
  5. IBRANCE [Suspect]
     Active Substance: PALBOCICLIB
     Indication: BREAST CANCER FEMALE
     Dosage: 125 MG, CYCLIC (TAKE FOR 21 DAYS FOLLOWED BY A 7 DAY REST PERIOD/TAKE WITH FOOD)
     Route: 048
     Dates: start: 20160107

REACTIONS (1)
  - Malaise [Unknown]

NARRATIVE: CASE EVENT DATE: 20191002
